FAERS Safety Report 12806034 (Version 2)
Quarter: 2017Q4

REPORT INFORMATION
  Report Type: Spontaneous
  Country: US (occurrence: US)
  Receive Date: 20161004
  Receipt Date: 20171120
  Transmission Date: 20180320
  Serious: No
  Sender: FDA-Public Use
  Company Number: US-PFIZER INC-2016462885

PATIENT
  Age: 78 Year
  Sex: Female

DRUGS (2)
  1. NEURONTIN [Suspect]
     Active Substance: GABAPENTIN
     Dosage: UNK
  2. INDOMETHACIN. [Suspect]
     Active Substance: INDOMETHACIN
     Dosage: UNK

REACTIONS (1)
  - Drug hypersensitivity [Unknown]
